FAERS Safety Report 13496880 (Version 2)
Quarter: 2017Q3

REPORT INFORMATION
  Report Type: Spontaneous
  Country: KW (occurrence: KW)
  Receive Date: 20170428
  Receipt Date: 20170727
  Transmission Date: 20171127
  Serious: Yes (Other)
  Sender: FDA-Public Use
  Company Number: KW-ABBVIE-17P-091-1958067-00

PATIENT
  Age: 11 Year
  Sex: Male

DRUGS (2)
  1. PARACETAMOL [Concomitant]
     Active Substance: ACETAMINOPHEN
     Indication: PRODUCT USED FOR UNKNOWN INDICATION
  2. KLACID [Suspect]
     Active Substance: CLARITHROMYCIN
     Indication: PRODUCT USED FOR UNKNOWN INDICATION
     Dosage: 15MG/KG/DAY
     Route: 048

REACTIONS (2)
  - Jaundice [Recovering/Resolving]
  - Hepatic function abnormal [Recovering/Resolving]
